FAERS Safety Report 13286601 (Version 2)
Quarter: 2017Q1

REPORT INFORMATION
  Report Type: Spontaneous
  Country: DK (occurrence: DK)
  Receive Date: 20170302
  Receipt Date: 20170314
  Transmission Date: 20170428
  Serious: Yes (Other)
  Sender: FDA-Public Use
  Company Number: DK-TEVA-744216ISR

PATIENT
  Sex: Male

DRUGS (2)
  1. JANUVIA [Interacting]
     Active Substance: SITAGLIPTIN PHOSPHATE
     Indication: DIABETES MELLITUS
     Dosage: STARTED JUST BEFORE THE FIRST ATTACK
     Route: 065
  2. RAMIPRIL. [Suspect]
     Active Substance: RAMIPRIL
     Indication: HYPERTENSION
     Route: 065
     Dates: start: 201208

REACTIONS (2)
  - Angioedema [Recovering/Resolving]
  - Drug interaction [Recovering/Resolving]
